FAERS Safety Report 5100108-1 (Version None)
Quarter: 2006Q3

REPORT INFORMATION
  Report Type: 
  Country: None (occurrence: None)
  Receive Date: 20060731
  Receipt Date: 20060519
  Transmission Date: 20061208
  Serious: No
  Sender: FDA-Public Use
  Company Number: 2006PV014139

PATIENT
  Age: 52 Year
  Sex: Female
  Weight: 97.5234 kg

DRUGS (2)
  1. BYETTA [Suspect]
     Indication: GLUCOSE TOLERANCE IMPAIRED
     Dosage: SEE IMAGE
     Route: 058
     Dates: start: 20060315, end: 20060414
  2. BYETTA [Suspect]
     Indication: GLUCOSE TOLERANCE IMPAIRED
     Dosage: SEE IMAGE
     Route: 058
     Dates: start: 20060415

REACTIONS (7)
  - DYSPEPSIA [None]
  - HEADACHE [None]
  - HOT FLUSH [None]
  - NAUSEA [None]
  - RETCHING [None]
  - VOMITING [None]
  - WEIGHT DECREASED [None]
